FAERS Safety Report 21293930 (Version 1)
Quarter: 2022Q3

REPORT INFORMATION
  Report Type: Spontaneous
  Country: US (occurrence: US)
  Receive Date: 20220905
  Receipt Date: 20220905
  Transmission Date: 20221027
  Serious: Yes (Other)
  Sender: FDA-Public Use
  Company Number: US-JNJFOC-20220860332

PATIENT
  Sex: Male

DRUGS (2)
  1. XARELTO [Suspect]
     Active Substance: RIVAROXABAN
     Indication: Atrial fibrillation
     Route: 048
     Dates: start: 202201
  2. XARELTO [Suspect]
     Active Substance: RIVAROXABAN
     Indication: Cerebrovascular accident prophylaxis

REACTIONS (1)
  - Cardiac ablation [Unknown]

NARRATIVE: CASE EVENT DATE: 20220826
